FAERS Safety Report 18381373 (Version 1)
Quarter: 2020Q4

REPORT INFORMATION
  Report Type: Spontaneous
  Country: US (occurrence: US)
  Receive Date: 20201013
  Receipt Date: 20201013
  Transmission Date: 20210114
  Serious: Yes (Other)
  Sender: FDA-Public Use
  Company Number: None

PATIENT
  Age: 63 Year
  Sex: Female
  Weight: 70.76 kg

DRUGS (2)
  1. ROSUVASTATIN 5MG [Suspect]
     Active Substance: ROSUVASTATIN
     Indication: TYPE V HYPERLIPIDAEMIA
     Route: 048
     Dates: start: 20170101, end: 20170401
  2. ATORVASTATIN 20MG [Suspect]
     Active Substance: ATORVASTATIN
     Indication: TYPE V HYPERLIPIDAEMIA
     Route: 048
     Dates: start: 20160101, end: 20160401

REACTIONS (3)
  - Myalgia [None]
  - Liver function test increased [None]
  - Abdominal pain [None]

NARRATIVE: CASE EVENT DATE: 20170104
